FAERS Safety Report 6025433-1 (Version None)
Quarter: 2008Q4

REPORT INFORMATION
  Report Type: 
  Country: None (occurrence: None)
  Receive Date: 20081229
  Receipt Date: 20081229
  Transmission Date: 20090506
  Serious: No
  Sender: FDA-Public Use
  Company Number: None

PATIENT
  Age: 57 Year
  Sex: Female
  Weight: 70.3075 kg

DRUGS (1)
  1. ACTONEL [Suspect]
     Indication: OSTEOPENIA
     Dosage: SINGLE DOSE MONTHLY PO
     Route: 048
     Dates: start: 20081206, end: 20081206

REACTIONS (7)
  - ARTHRALGIA [None]
  - BACK PAIN [None]
  - CHILLS [None]
  - JOINT STIFFNESS [None]
  - OEDEMA PERIPHERAL [None]
  - PAIN [None]
  - TREMOR [None]
